FAERS Safety Report 16973004 (Version 1)
Quarter: 2019Q4

REPORT INFORMATION
  Report Type: Report from Study
  Country: US (occurrence: US)
  Receive Date: 20191030
  Receipt Date: 20191030
  Transmission Date: 20200122
  Serious: Yes (Life-Threatening, Hospitalization, Other)
  Sender: FDA-Public Use
  Company Number: US-ROCHE-2290308

PATIENT
  Age: 4 Year
  Sex: Male
  Weight: 23.1 kg

DRUGS (33)
  1. GABAPENTIN. [Concomitant]
     Active Substance: GABAPENTIN
  2. LEVOTHYROXINE. [Concomitant]
     Active Substance: LEVOTHYROXINE
  3. BACLOFEN. [Concomitant]
     Active Substance: BACLOFEN
  4. LORAZEPAM. [Concomitant]
     Active Substance: LORAZEPAM
     Route: 065
  5. MAGNESIUM CHLORIDE. [Concomitant]
     Active Substance: MAGNESIUM CHLORIDE
  6. GABAPENTIN. [Concomitant]
     Active Substance: GABAPENTIN
  7. ENTRECTINIB [Suspect]
     Active Substance: ENTRECTINIB
     Indication: ANAPLASTIC ASTROCYTOMA
  8. SENNOSIDES. [Concomitant]
     Active Substance: SENNOSIDES
     Route: 065
  9. SODIUM CHLORIDE. [Concomitant]
     Active Substance: SODIUM CHLORIDE
  10. ACETAMINOPHEN. [Concomitant]
     Active Substance: ACETAMINOPHEN
  11. METHADONE [Concomitant]
     Active Substance: METHADONE HYDROCHLORIDE
     Route: 065
     Dates: start: 20190813
  12. SIMETHICONE (DIMETHICONE) [Concomitant]
     Active Substance: DIMETHICONE
  13. MORPHINE [Concomitant]
     Active Substance: MORPHINE
     Route: 065
  14. DESMOPRESSIN [Concomitant]
     Active Substance: DESMOPRESSIN
  15. DEXAMETHASONE. [Concomitant]
     Active Substance: DEXAMETHASONE
  16. DIAZEPAM. [Concomitant]
     Active Substance: DIAZEPAM
     Route: 065
  17. FAMOTIDINE. [Concomitant]
     Active Substance: FAMOTIDINE
  18. LEVETIRACETAM. [Concomitant]
     Active Substance: LEVETIRACETAM
  19. POTASSIUM CHLORIDE. [Concomitant]
     Active Substance: POTASSIUM CHLORIDE
  20. NALOXONE [Concomitant]
     Active Substance: NALOXONE
  21. ENTRECTINIB [Suspect]
     Active Substance: ENTRECTINIB
     Indication: NEOPLASM
     Dosage: FEEDING TUBE
     Route: 048
     Dates: start: 20190312
  22. FENTANYL. [Concomitant]
     Active Substance: FENTANYL
  23. ONDANSETRON [Concomitant]
     Active Substance: ONDANSETRON
  24. PYRIDOXINE [Concomitant]
     Active Substance: PYRIDOXINE
  25. ATOVAQUONE. [Concomitant]
     Active Substance: ATOVAQUONE
  26. SCOPOLAMINE [HYOSCINE] [Concomitant]
     Active Substance: SCOPOLAMINE
  27. NYSTATINE [Concomitant]
  28. CHOLECALCIFEROL [Concomitant]
     Active Substance: CHOLECALCIFEROL
     Route: 065
     Dates: start: 200403
  29. HYDROCORTISON [HYDROCORTISONE] [Concomitant]
  30. PERAMPANEL [Concomitant]
     Active Substance: PERAMPANEL
     Route: 065
     Dates: start: 20190420
  31. OMEGA 3 [DOCOSAHEXAENOIC ACID;EICOSAPENTAENOIC ACID] [Concomitant]
     Active Substance: DOCONEXENT\ICOSAPENT
  32. ALBUTEROL [SALBUTAMOL] [Concomitant]
     Active Substance: ALBUTEROL
  33. POLYETHYLENE GLYCOL [Concomitant]
     Active Substance: POLYETHYLENE GLYCOLS

REACTIONS (8)
  - Lipase increased [Recovered/Resolved]
  - Adenovirus infection [Unknown]
  - Viral upper respiratory tract infection [Unknown]
  - Wound infection [Unknown]
  - Hyponatraemia [Recovered/Resolved]
  - Hypernatraemia [Recovered/Resolved]
  - Respiratory syncytial virus infection [Unknown]
  - Hypoxia [Unknown]

NARRATIVE: CASE EVENT DATE: 20190319
